FAERS Safety Report 8536574-9 (Version None)
Quarter: 2012Q3

REPORT INFORMATION
  Report Type: 
  Country: None (occurrence: None)
  Receive Date: 20120725
  Receipt Date: 20120717
  Transmission Date: 20120928
  Serious: Yes (Hospitalization)
  Sender: FDA-Public Use
  Company Number: US-UCBSA-061435

PATIENT
  Age: 36 Year
  Sex: Female
  Weight: 63 kg

DRUGS (3)
  1. CIMZIA [Suspect]
     Indication: CROHN'S DISEASE
     Dates: start: 20090819
  2. METHOTREXATE [Concomitant]
     Dosage: UNKNOWN DOSE
  3. CIMZIA [Suspect]
     Dates: start: 20090902

REACTIONS (1)
  - GASTROENTERITIS VIRAL [None]
